FAERS Safety Report 18741066 (Version 1)
Quarter: 2021Q1

REPORT INFORMATION
  Report Type: Spontaneous
  Country: US (occurrence: US)
  Receive Date: 20210114
  Receipt Date: 20210114
  Transmission Date: 20210419
  Serious: Yes (Hospitalization)
  Sender: FDA-Public Use
  Company Number: None

PATIENT
  Age: 70 Year
  Sex: Female
  Weight: 80.1 kg

DRUGS (7)
  1. HYDROCHLOROTHIAZIDE 12.5 MG DAILY [Concomitant]
  2. HYDROXYCHLOROQUINE 200 MG BID [Concomitant]
     Active Substance: HYDROXYCHLOROQUINE
  3. LEFLUNOMIDE 10 MG DAILY [Concomitant]
  4. AMLODIPINE 10 MG DAILY [Concomitant]
  5. IBUPROFEN 200 MG PRN [Concomitant]
  6. PREDNISONE 5 MG DAILY [Concomitant]
  7. BAMLANIVIMAB. [Suspect]
     Active Substance: BAMLANIVIMAB
     Indication: COVID-19
     Dates: start: 20210111, end: 20210111

REACTIONS (1)
  - Angioedema [None]

NARRATIVE: CASE EVENT DATE: 20210112
